FAERS Safety Report 8536880-8 (Version None)
Quarter: 2012Q3

REPORT INFORMATION
  Report Type: 
  Country: None (occurrence: None)
  Receive Date: 20120725
  Receipt Date: 20120719
  Transmission Date: 20120928
  Serious: Yes (Death)
  Sender: FDA-Public Use
  Company Number: VE-PFIZER INC-2012150960

PATIENT
  Age: 81 Year
  Sex: Female

DRUGS (4)
  1. OMEPRAZOLE [Concomitant]
     Dosage: 40 MG, 1X/DAY
     Route: 048
  2. CONCOR [Concomitant]
     Dosage: 5 MG, 1X/DAY
     Route: 048
  3. ASPIRIN [Concomitant]
     Dosage: 81 MG, 1X/DAY
     Route: 048
  4. LIPITOR [Suspect]
     Indication: HYPERCHOLESTEROLAEMIA
     Dosage: 40 MG, 1X/DAY
     Route: 048
     Dates: start: 20060101, end: 20111001

REACTIONS (1)
  - LUNG INFECTION [None]
